FAERS Safety Report 15901409 (Version 1)
Quarter: 2019Q1

REPORT INFORMATION
  Report Type: Spontaneous
  Country: US (occurrence: US)
  Receive Date: 20190110
  Receipt Date: 20190110
  Transmission Date: 20190417
  Serious: No
  Sender: FDA-Public Use
  Company Number: None

PATIENT
  Age: 73 Year
  Sex: Female
  Weight: 120.66 kg

DRUGS (1)
  1. SIMPONI ARIA [Suspect]
     Active Substance: GOLIMUMAB
     Indication: RHEUMATOID ARTHRITIS
     Dosage: INFUSE 242MG INTRAVENOUSLY OVER 30 MINS WEEK 0, 4 THEN EVERY 8 WEEKS AS DIRECTED
     Route: 042
     Dates: start: 201705

REACTIONS (2)
  - Knee arthroplasty [None]
  - Therapy cessation [None]
